FAERS Safety Report 8799526 (Version 1)
Quarter: 2012Q4

REPORT INFORMATION
  Report Type: Spontaneous
  Country: US (occurrence: None)
  Receive Date: 20120918
  Receipt Date: 20120918
  Transmission Date: 20130627
  Serious: Yes (Hospitalization, Disabling)
  Sender: FDA-Public Use
  Company Number: None

PATIENT
  Age: 59 Year
  Sex: Female
  Weight: 77.11 kg

DRUGS (1)
  1. DYSPORT [Suspect]
     Dosage: 3 injections each eye onece last 4 to 6 months

REACTIONS (9)
  - Visual acuity reduced [None]
  - Diplopia [None]
  - Dizziness [None]
  - Vision blurred [None]
  - Wrong technique in drug usage process [None]
  - Eye haemorrhage [None]
  - Eye haemorrhage [None]
  - Impaired driving ability [None]
  - Impaired work ability [None]
